FAERS Safety Report 9468796 (Version 3)
Quarter: 2014Q2

REPORT INFORMATION
  Report Type: Spontaneous
  Country: FR (occurrence: FR)
  Receive Date: 20130821
  Receipt Date: 20140516
  Transmission Date: 20141212
  Serious: Yes (Other)
  Sender: FDA-Public Use
  Company Number: FR-ROCHE-1264062

PATIENT
  Age: 63 Year
  Sex: Male

DRUGS (16)
  1. XELODA [Suspect]
     Indication: COLON NEOPLASM
     Dosage: 1500 MG IN MORNING AND 1500 MG IN EVENING
     Route: 048
     Dates: start: 20130625
  2. XELODA [Suspect]
     Indication: METASTASES TO LUNG
     Route: 048
     Dates: start: 20130730
  3. XELODA [Suspect]
     Indication: METASTASES TO ADRENALS
     Dosage: FOR 7 DAYS EVERY 14 DAYS
     Route: 065
     Dates: start: 20130820
  4. ERBITUX [Suspect]
     Indication: PRODUCT USED FOR UNKNOWN INDICATION
     Route: 042
     Dates: start: 20130625
  5. ERBITUX [Suspect]
     Dosage: 10% DIMINUTION
     Route: 042
     Dates: start: 20130820
  6. ERBITUX [Suspect]
     Route: 042
     Dates: start: 20130903
  7. ERBITUX [Suspect]
     Route: 042
     Dates: start: 20130927
  8. ERBITUX [Suspect]
     Route: 042
     Dates: start: 20131016
  9. OXALIPLATIN [Suspect]
     Indication: PRODUCT USED FOR UNKNOWN INDICATION
     Route: 042
     Dates: start: 20130625
  10. OXALIPLATIN [Suspect]
     Route: 042
     Dates: start: 20130730
  11. OXALIPLATIN [Suspect]
     Route: 042
     Dates: start: 20130820
  12. OXALIPLATIN [Suspect]
     Route: 042
     Dates: start: 20130903
  13. OXALIPLATIN [Suspect]
     Route: 042
     Dates: start: 20130927
  14. OXALIPLATIN [Suspect]
     Route: 042
     Dates: start: 20131016
  15. IRINOTECAN [Concomitant]
     Route: 065
     Dates: start: 20131030
  16. BEVACIZUMAB [Concomitant]
     Route: 065
     Dates: start: 20131030

REACTIONS (4)
  - Mucosal inflammation [Recovered/Resolved]
  - Neurotoxicity [Recovered/Resolved]
  - Herpes virus infection [Recovered/Resolved]
  - Skin toxicity [Recovered/Resolved]
